FAERS Safety Report 9376358 (Version 2)
Quarter: 2013Q3

REPORT INFORMATION
  Report Type: Report from Study
  Country: CA (occurrence: CA)
  Receive Date: 20130701
  Receipt Date: 20130705
  Transmission Date: 20140515
  Serious: Yes (Other)
  Sender: FDA-Public Use
  Company Number: CA-JNJFOC-20130610226

PATIENT
  Age: 54 Year
  Sex: Male
  Weight: 113.4 kg

DRUGS (5)
  1. REMICADE [Suspect]
     Indication: COLITIS ULCERATIVE
     Route: 042
     Dates: start: 20130418
  2. REMICADE [Suspect]
     Indication: COLITIS ULCERATIVE
     Route: 042
     Dates: start: 20121129
  3. METHOTREXATE [Concomitant]
     Dosage: 2.5*9 TABS/WEEKS
     Route: 065
  4. FOLIC ACID [Concomitant]
     Route: 065
  5. LOMOTIL [Concomitant]
     Route: 065

REACTIONS (2)
  - Atrial fibrillation [Unknown]
  - Infusion related reaction [Unknown]
